FAERS Safety Report 12581607 (Version 2)
Quarter: 2016Q3

REPORT INFORMATION
  Report Type: Report from Study
  Country: GB (occurrence: GB)
  Receive Date: 20160722
  Receipt Date: 20160728
  Transmission Date: 20161109
  Serious: Yes (Other)
  Sender: FDA-Public Use
  Company Number: GB-BEH-2016071306

PATIENT

DRUGS (1)
  1. HUMAN IMMUNOGLOBULIN SC (GENERIC) [Suspect]
     Active Substance: HUMAN IMMUNOGLOBULIN G
     Indication: BRUTON^S AGAMMAGLOBULINAEMIA
     Route: 058

REACTIONS (2)
  - Lung disorder [Unknown]
  - Drug ineffective [Unknown]
